FAERS Safety Report 8586458 (Version 3)
Quarter: 2013Q3

REPORT INFORMATION
  Report Type: Spontaneous
  Country: US (occurrence: US)
  Receive Date: 20120530
  Receipt Date: 20130812
  Transmission Date: 20140515
  Serious: Yes (Hospitalization, Other)
  Sender: FDA-Public Use
  Company Number: US-ROCHE-784238

PATIENT
  Age: 26 Year
  Sex: Male
  Weight: 90.8 kg

DRUGS (4)
  1. ACCUTANE [Suspect]
     Indication: ACNE CYSTIC
     Route: 065
     Dates: start: 199209, end: 1993
  2. ACCUTANE [Suspect]
     Route: 065
     Dates: start: 1994, end: 1995
  3. BENZAC [Concomitant]
  4. SMZ-TMP [Concomitant]

REACTIONS (7)
  - Colitis ulcerative [Unknown]
  - Inflammatory bowel disease [Unknown]
  - Suicide attempt [Unknown]
  - Suicidal ideation [Unknown]
  - Depression [Unknown]
  - Anal abscess [Unknown]
  - Bipolar disorder [Unknown]
